FAERS Safety Report 5785811-2 (Version None)
Quarter: 2008Q2

REPORT INFORMATION
  Report Type: 
  Country: None (occurrence: None)
  Receive Date: 20080605
  Receipt Date: 20080507
  Transmission Date: 20081010
  Serious: No
  Sender: FDA-Public Use
  Company Number: A0711550A

PATIENT
  Age: 42 Year

DRUGS (1)
  1. ALLI [Suspect]
     Indication: DRUG USE FOR UNKNOWN INDICATION
     Dates: start: 20080211

REACTIONS (11)
  - CHANGE OF BOWEL HABIT [None]
  - DRUG INEFFECTIVE [None]
  - DYSSTASIA [None]
  - ENDOCRINE DISORDER [None]
  - FATIGUE [None]
  - FOOD CRAVING [None]
  - GASTROINTESTINAL DISORDER [None]
  - HUNGER [None]
  - MOOD ALTERED [None]
  - WEIGHT FLUCTUATION [None]
  - WEIGHT INCREASED [None]
